FAERS Safety Report 17554567 (Version 1)
Quarter: 2020Q1

REPORT INFORMATION
  Report Type: Spontaneous
  Country: ES (occurrence: ES)
  Receive Date: 20200318
  Receipt Date: 20200318
  Transmission Date: 20200409
  Serious: Yes (Hospitalization)
  Sender: FDA-Public Use
  Company Number: ES-ACCORD-176141

PATIENT
  Age: 79 Year
  Sex: Female

DRUGS (10)
  1. METAMIZOLE SODIUM [Concomitant]
     Active Substance: METAMIZOLE SODIUM
     Indication: BACK PAIN
     Dosage: STRENGTH: 575 MG
     Route: 048
     Dates: start: 20200219
  2. ZALDIAR [Concomitant]
     Active Substance: ACETAMINOPHEN\TRAMADOL HYDROCHLORIDE
     Indication: BACK PAIN
     Dosage: STRENGTH:37.5 MG/325 MG, 60 TABLETS
     Route: 048
     Dates: start: 20200219, end: 20200229
  3. DICLOFENAC [Interacting]
     Active Substance: DICLOFENAC
     Indication: BACK PAIN
     Dosage: DICLOFENA RETARD, 75MG EVERY 12 H
     Route: 048
     Dates: start: 20200219, end: 20200225
  4. SINTROM [Concomitant]
     Active Substance: ACENOCOUMAROL
     Indication: ATRIAL FIBRILLATION
     Dosage: STRENGTH: 1 MG
     Route: 048
     Dates: start: 20180725
  5. FUROSEMIDE. [Suspect]
     Active Substance: FUROSEMIDE
     Indication: PRODUCT USED FOR UNKNOWN INDICATION
     Dosage: STRENGTH: 40 MG, 30 TABLETS
     Route: 048
     Dates: start: 20170105
  6. BISOPROLOL [Concomitant]
     Active Substance: BISOPROLOL
     Dosage: STRENGTH: 5 MG
     Route: 048
     Dates: start: 20171107, end: 20200226
  7. ENALAPRIL/HYDROCHLOROTHIAZIDE [Interacting]
     Active Substance: ENALAPRIL MALEATE\HYDROCHLOROTHIAZIDE
     Indication: HYPERTENSION
     Dosage: 1 DAY
     Route: 048
     Dates: start: 20130304, end: 20200227
  8. DEXKETOPROFEN [DEXKETOPROFEN TROMETAMOL] [Interacting]
     Active Substance: DEXKETOPROFEN TROMETAMOL
     Indication: BACK PAIN
     Dosage: 25MG EVERY 12 H
     Route: 048
     Dates: start: 20200216, end: 20200219
  9. IBUPROFEN. [Concomitant]
     Active Substance: IBUPROFEN
     Indication: BACK PAIN
     Dosage: STRENGTH: 600 MG
     Route: 048
     Dates: start: 20200214, end: 20200216
  10. LANACORDIN [Concomitant]
     Active Substance: DIGOXIN
     Indication: ATRIAL FIBRILLATION
     Dosage: 3 A DAY
     Dates: start: 20170222, end: 20200226

REACTIONS (3)
  - Acute kidney injury [Recovering/Resolving]
  - Drug interaction [Unknown]
  - Toxicity to various agents [Recovering/Resolving]

NARRATIVE: CASE EVENT DATE: 20200226
